FAERS Safety Report 8571361-7 (Version None)
Quarter: 2012Q3

REPORT INFORMATION
  Report Type: 
  Country: None (occurrence: None)
  Receive Date: 20120806
  Receipt Date: 20120725
  Transmission Date: 20120928
  Serious: Yes (Hospitalization)
  Sender: FDA-Public Use
  Company Number: JP-ELI_LILLY_AND_COMPANY-JP201207007842

PATIENT
  Age: 75 Year
  Sex: Female

DRUGS (1)
  1. FORTEO [Suspect]
     Dosage: UNK
     Route: 058
     Dates: end: 20120701

REACTIONS (2)
  - DRUG DOSE OMISSION [None]
  - HOSPITALISATION [None]
